FAERS Safety Report 7268977-7 (Version None)
Quarter: 2011Q1

REPORT INFORMATION
  Report Type: 
  Country: None (occurrence: None)
  Receive Date: 20110201
  Receipt Date: 20110125
  Transmission Date: 20110831
  Serious: Yes (Hospitalization)
  Sender: FDA-Public Use
  Company Number: US-BRISTOL-MYERS SQUIBB COMPANY-15497100

PATIENT
  Age: 79 Year
  Sex: Female

DRUGS (1)
  1. ORENCIA [Suspect]
     Indication: RHEUMATOID ARTHRITIS
     Dosage: NO.OF ING:4
     Route: 042
     Dates: start: 20101201

REACTIONS (3)
  - HEPATITIS ACUTE [None]
  - WHITE BLOOD CELL COUNT INCREASED [None]
  - INTERNATIONAL NORMALISED RATIO INCREASED [None]
